FAERS Safety Report 4291970-3 (Version None)
Quarter: 2004Q1

REPORT INFORMATION
  Report Type: 
  Country: None (occurrence: None)
  Receive Date: 20040126
  Receipt Date: 20031031
  Transmission Date: 20041129
  Serious: No
  Sender: FDA-Public Use
  Company Number: USA031051318

PATIENT
  Age: 40 Year
  Sex: Male

DRUGS (8)
  1. FORTEO [Suspect]
     Indication: BONE DENSITY DECREASED
     Dosage: 20 UG/DAY
     Dates: start: 20030601
  2. SOMA [Concomitant]
  3. VICODIN [Concomitant]
  4. CALCIUM [Concomitant]
  5. PREVACID [Concomitant]
  6. INDOCIN [Concomitant]
  7. ZOFRAN [Concomitant]
  8. PHENERGAN [Concomitant]

REACTIONS (2)
  - INJECTION SITE HAEMORRHAGE [None]
  - NAUSEA [None]
